FAERS Safety Report 8877582 (Version 1)
Quarter: 2012Q4

REPORT INFORMATION
  Report Type: 
  Country: GB (occurrence: GB)
  Receive Date: 20121024
  Receipt Date: 20121024
  Transmission Date: 20130627
  Serious: Yes (Disabling)
  Sender: FDA-Public Use
  Company Number: GB-ROCHE-1147719

PATIENT
  Age: 61 Year
  Sex: Female
  Weight: 89 kg

DRUGS (10)
  1. RITUXIMAB [Suspect]
     Indication: B-CELL LYMPHOMA
     Route: 042
     Dates: start: 20101101, end: 20110101
  2. FOLIC ACID [Concomitant]
  3. MEBEVERINE [Concomitant]
  4. METFORMIN [Concomitant]
  5. OMEPRAZOLE [Concomitant]
  6. PARACETAMOL [Concomitant]
  7. PENICILLIN V [Concomitant]
  8. PREDNISOLONE [Concomitant]
  9. SIMVASTATIN [Concomitant]
  10. VENLAFAXINE [Concomitant]

REACTIONS (1)
  - Progressive multifocal leukoencephalopathy [Not Recovered/Not Resolved]
